FAERS Safety Report 5325245-8 (Version None)
Quarter: 2007Q2

REPORT INFORMATION
  Report Type: 
  Country: None (occurrence: None)
  Receive Date: 20070515
  Receipt Date: 20070504
  Transmission Date: 20071010
  Serious: Yes (Hospitalization)
  Sender: FDA-Public Use
  Company Number: HQWYE172102NOV06

PATIENT
  Age: 60 Year
  Sex: Male

DRUGS (10)
  1. PANTOZOL [Suspect]
     Route: 048
  2. SANDIMMUNE [Suspect]
     Route: 048
  3. PLAVIX [Suspect]
     Route: 048
     Dates: start: 20060228
  4. BETASERC [Concomitant]
     Route: 048
  5. CELLCEPT [Concomitant]
     Route: 048
  6. PREDNISONE TAB [Concomitant]
     Route: 048
  7. NEURONTIN [Concomitant]
     Route: 048
  8. BELOC [Concomitant]
     Route: 048
  9. LESCOL [Suspect]
     Route: 048
     Dates: start: 20060228, end: 20060328
  10. ACETYLSALICYLIC ACID SRT [Concomitant]
     Route: 048
     Dates: start: 20060228

REACTIONS (1)
  - RHABDOMYOLYSIS [None]
